FAERS Safety Report 24919244 (Version 2)
Quarter: 2025Q2

REPORT INFORMATION
  Report Type: Spontaneous
  Country: GB (occurrence: GB)
  Receive Date: 20250204
  Receipt Date: 20250408
  Transmission Date: 20250717
  Serious: Yes (Other)
  Sender: MSN LABORATORIES
  Company Number: None

PATIENT

DRUGS (12)
  1. CLOPIDOGREL [Suspect]
     Active Substance: CLOPIDOGREL BISULFATE
     Indication: Stent placement
     Dosage: 75MG PER DAY AT MORNING
     Route: 048
     Dates: start: 20250114
  2. LISINOPRIL [Concomitant]
     Active Substance: LISINOPRIL
     Route: 065
  3. LISINOPRIL AND HYDROCHLOROTHIAZIDE [Concomitant]
     Active Substance: HYDROCHLOROTHIAZIDE\LISINOPRIL
     Indication: Blood pressure measurement
     Route: 065
  4. NOVORAPID [Concomitant]
     Active Substance: INSULIN ASPART
     Indication: Diabetes mellitus
     Route: 065
  5. LANTUS SOLOSTAR [Concomitant]
     Active Substance: INSULIN GLARGINE
     Indication: Diabetes mellitus
     Route: 065
  6. LANTUS SOLOSTAR [Concomitant]
     Active Substance: INSULIN GLARGINE
     Dosage: 20 UNITS OF SOLASTAR INSULIN ONCE A DAY
     Route: 065
  7. BISOPROLOL [Concomitant]
     Active Substance: BISOPROLOL
     Indication: Coronary artery disease
     Route: 065
  8. DOXAZOSIN [Concomitant]
     Active Substance: DOXAZOSIN MESYLATE
     Indication: Blood pressure measurement
     Route: 065
  9. MOVICOL [Concomitant]
     Active Substance: POLYETHYLENE GLYCOL 3350\POTASSIUM CHLORIDE\SODIUM BICARBONATE\SODIUM CHLORIDE
     Indication: Constipation
     Route: 065
  10. ASPIRIN [Concomitant]
     Active Substance: ASPIRIN
     Indication: Coronary angioplasty
     Route: 065
  11. NITROGLYCERIN [Concomitant]
     Active Substance: NITROGLYCERIN
     Indication: Angina pectoris
     Route: 065
  12. RANOLAZINE [Concomitant]
     Active Substance: RANOLAZINE
     Indication: Angina pectoris
     Route: 065
     Dates: start: 20240801

REACTIONS (4)
  - Blood glucose abnormal [Not Recovered/Not Resolved]
  - Hyperglycaemia [Not Recovered/Not Resolved]
  - Joint noise [Not Recovered/Not Resolved]
  - Arthralgia [Not Recovered/Not Resolved]

NARRATIVE: CASE EVENT DATE: 20250116
